FAERS Safety Report 24276109 (Version 2)
Quarter: 2024Q3

REPORT INFORMATION
  Report Type: Spontaneous
  Country: PT (occurrence: PT)
  Receive Date: 20240903
  Receipt Date: 20240916
  Transmission Date: 20241017
  Serious: Yes (Hospitalization, Other)
  Sender: SANDOZ
  Company Number: None

PATIENT
  Age: 79 Year
  Sex: Female

DRUGS (4)
  1. ACETAMINOPHEN [Suspect]
     Active Substance: ACETAMINOPHEN
     Indication: Osteitis deformans
     Dosage: UNK
     Route: 065
  2. ACETAMINOPHEN\TRAMADOL HYDROCHLORIDE [Suspect]
     Active Substance: ACETAMINOPHEN\TRAMADOL HYDROCHLORIDE
     Indication: Product used for unknown indication
     Dosage: UNK
     Route: 065
  3. TAPENTADOL [Interacting]
     Active Substance: TAPENTADOL
     Indication: Osteitis deformans
     Dosage: UNK
     Route: 065
  4. TRAMADOL HYDROCHLORIDE [Interacting]
     Active Substance: TRAMADOL HYDROCHLORIDE
     Indication: Osteitis deformans
     Dosage: UNK
     Route: 065

REACTIONS (12)
  - Unresponsive to stimuli [Recovering/Resolving]
  - Mydriasis [Recovering/Resolving]
  - Serotonin syndrome [Recovered/Resolved]
  - Livedo reticularis [Recovering/Resolving]
  - Chills [Recovering/Resolving]
  - Leukocytosis [Recovering/Resolving]
  - Altered state of consciousness [Recovering/Resolving]
  - Tachypnoea [Recovering/Resolving]
  - Hyperthermia malignant [Recovered/Resolved]
  - Hyperthermia [Recovered/Resolved]
  - Tremor [Recovering/Resolving]
  - Pyrexia [Recovering/Resolving]
